FAERS Safety Report 6636408-3 (Version None)
Quarter: 2010Q1

REPORT INFORMATION
  Report Type: 
  Country: None (occurrence: None)
  Receive Date: 20100316
  Receipt Date: 20100315
  Transmission Date: 20100710
  Serious: Yes (Hospitalization, Other)
  Sender: FDA-Public Use
  Company Number: US-ABBOTT-10P-163-0630193-00

PATIENT
  Sex: Male

DRUGS (6)
  1. NIASPAN [Suspect]
     Indication: BLOOD CHOLESTEROL INCREASED
     Dates: start: 20091101, end: 20091201
  2. NIASPAN [Suspect]
     Dates: start: 20091201, end: 20100112
  3. NIASPAN [Suspect]
     Dates: start: 20100112
  4. ZETIA [Concomitant]
     Indication: BLOOD CHOLESTEROL INCREASED
  5. CRESTOR [Concomitant]
     Indication: BLOOD CHOLESTEROL INCREASED
  6. UNKNOWN BETA BLOCKER [Concomitant]
     Indication: DRUG USE FOR UNKNOWN INDICATION

REACTIONS (5)
  - ANGINA PECTORIS [None]
  - CHEST PAIN [None]
  - GLYCOSYLATED HAEMOGLOBIN INCREASED [None]
  - MYOCARDIAL ISCHAEMIA [None]
  - VASCULAR GRAFT OCCLUSION [None]
